FAERS Safety Report 18786482 (Version 4)
Quarter: 2021Q1

REPORT INFORMATION
  Report Type: Spontaneous
  Country: US (occurrence: US)
  Receive Date: 20210126
  Receipt Date: 20210330
  Transmission Date: 20210419
  Serious: Yes (Other)
  Sender: FDA-Public Use
  Company Number: US-AMGEN-USASP2021010872

PATIENT
  Age: 57 Year
  Sex: Female

DRUGS (21)
  1. OTEZLA [Suspect]
     Active Substance: APREMILAST
     Indication: PSORIATIC ARTHROPATHY
     Dosage: 30 MILLIGRAM, BID
     Route: 048
     Dates: start: 20191231
  2. LEXAPRO [Concomitant]
     Active Substance: ESCITALOPRAM OXALATE
  3. ZYRTEC [Concomitant]
     Active Substance: CETIRIZINE HYDROCHLORIDE
  4. FOLIC ACID. [Concomitant]
     Active Substance: FOLIC ACID
  5. MELOXICAM. [Concomitant]
     Active Substance: MELOXICAM
  6. BUPROPION. [Concomitant]
     Active Substance: BUPROPION
  7. PROTONIX [OMEPRAZOLE] [Concomitant]
     Active Substance: OMEPRAZOLE
  8. METHOTREXATE. [Concomitant]
     Active Substance: METHOTREXATE
  9. COVID?19 VACCINE [Concomitant]
     Dosage: UNK
     Dates: start: 202101
  10. OTEZLA [Suspect]
     Active Substance: APREMILAST
     Indication: PSORIASIS
  11. ALPRAZOLAM. [Concomitant]
     Active Substance: ALPRAZOLAM
  12. CLOBETASOL [Concomitant]
     Active Substance: CLOBETASOL
  13. NEXIUM I.V. [Concomitant]
     Active Substance: ESOMEPRAZOLE SODIUM
  14. PROPOXYPHENE AND ACETAMINOPHEN [Concomitant]
     Active Substance: ACETAMINOPHEN\PROPOXYPHENE NAPSYLATE
  15. CYCLOBENZAPRINE. [Concomitant]
     Active Substance: CYCLOBENZAPRINE
  16. HUMIRA [Concomitant]
     Active Substance: ADALIMUMAB
     Dosage: UNK
     Dates: end: 20210122
  17. LEFLUNOMIDE. [Concomitant]
     Active Substance: LEFLUNOMIDE
  18. LISINOPRIL. [Concomitant]
     Active Substance: LISINOPRIL
  19. ROSUVASTATIN. [Concomitant]
     Active Substance: ROSUVASTATIN
  20. ESCITALOPRAM [Concomitant]
     Active Substance: ESCITALOPRAM OXALATE
  21. PANTOPRAZOLE [Concomitant]
     Active Substance: PANTOPRAZOLE

REACTIONS (2)
  - Psoriatic arthropathy [Not Recovered/Not Resolved]
  - Psoriasis [Not Recovered/Not Resolved]

NARRATIVE: CASE EVENT DATE: 20210301
